FAERS Safety Report 8170998-7 (Version None)
Quarter: 2012Q1

REPORT INFORMATION
  Report Type: 
  Country: None (occurrence: None)
  Receive Date: 20120228
  Receipt Date: 20120217
  Transmission Date: 20120608
  Serious: Yes (Death, Hospitalization, Other)
  Sender: FDA-Public Use
  Company Number: GB-JNJFOC-20110903592

PATIENT
  Age: 60 Year
  Sex: Male

DRUGS (3)
  1. REMICADE [Suspect]
     Dosage: ALSO GIVEN DOSE RANGE BETWEEN 340 MG TO 420 MG
     Route: 042
     Dates: start: 20081001, end: 20081101
  2. REMICADE [Suspect]
     Indication: CROHN'S DISEASE
     Dosage: ALSO GIVEN DOSE RANGE BETWEEN 340 MG TO 420 MG
     Route: 042
     Dates: start: 20090901, end: 20091201
  3. REMICADE [Suspect]
     Dosage: ALSO GIVEN DOSE RANGE BETWEEN 340 MG TO 420 MG
     Route: 042
     Dates: start: 20100901, end: 20110501

REACTIONS (3)
  - PNEUMONIA ASPIRATION [None]
  - GASTROINTESTINAL HAEMORRHAGE [None]
  - CHRONIC LYMPHOCYTIC LEUKAEMIA [None]
